FAERS Safety Report 6745387-X (Version None)
Quarter: 2010Q2

REPORT INFORMATION
  Report Type: 
  Country: None (occurrence: None)
  Receive Date: 20100528
  Receipt Date: 20100521
  Transmission Date: 20101027
  Serious: No
  Sender: FDA-Public Use
  Company Number: US-BIOGENIDEC-2010BI017153

PATIENT
  Age: 27 Year
  Sex: Female

DRUGS (3)
  1. AVONEX [Suspect]
     Indication: MULTIPLE SCLEROSIS
     Route: 030
     Dates: start: 20060922, end: 20060926
  2. AVONEX [Suspect]
     Route: 030
     Dates: start: 20080805, end: 20090211
  3. AVONEX [Suspect]
     Route: 030
     Dates: start: 20100108

REACTIONS (8)
  - ABDOMINAL PAIN UPPER [None]
  - BACK PAIN [None]
  - DEPRESSED MOOD [None]
  - HYPOAESTHESIA [None]
  - INVESTIGATION ABNORMAL [None]
  - JOINT SPRAIN [None]
  - LIVER FUNCTION TEST ABNORMAL [None]
  - PAIN IN EXTREMITY [None]
